FAERS Safety Report 7207414-5 (Version None)
Quarter: 2010Q4

REPORT INFORMATION
  Report Type: 
  Country: None (occurrence: None)
  Receive Date: 20101217
  Receipt Date: 20101202
  Transmission Date: 20110411
  Serious: Yes (Hospitalization)
  Sender: FDA-Public Use
  Company Number: 1000017682

PATIENT
  Age: 83 Year
  Sex: Female

DRUGS (3)
  1. ESCITALOPRAM [Suspect]
     Dosage: 10 MG (10 MG, 1 IN 1 D), ORAL
     Route: 048
     Dates: end: 20101023
  2. TOPALGIC LP (TRAMADOL HYDROCHLORIDE) (100 MILLIGRAM, TABLETS) [Suspect]
     Dosage: 200 MG (100 MG, 2 IN 1 D)
     Dates: start: 20101021, end: 20101023
  3. SINEMET LP (CARBIDOPA, LEVODOPA) (25 MILLIGRAM, TABLETS) (CARBIDOPA, L [Concomitant]

REACTIONS (6)
  - APHASIA [None]
  - DRUG INTERACTION [None]
  - HALLUCINATION [None]
  - INCOHERENT [None]
  - NERVOUS SYSTEM DISORDER [None]
  - TREMOR [None]
